FAERS Safety Report 4378888-2 (Version None)
Quarter: 2004Q2

REPORT INFORMATION
  Report Type: 
  Country: None (occurrence: None)
  Receive Date: 20040616
  Receipt Date: 20040607
  Transmission Date: 20050107
  Serious: Yes (Hospitalization)
  Sender: FDA-Public Use
  Company Number: FR-MERCK-0406FRA00038

PATIENT
  Age: 79 Year
  Sex: Female

DRUGS (6)
  1. AMIODARONE HCL [Concomitant]
     Route: 048
     Dates: end: 20030711
  2. FUROSEMIDE [Suspect]
     Route: 048
     Dates: end: 20030703
  3. GENTAMICIN [Suspect]
     Indication: SEPSIS
     Route: 042
     Dates: end: 20030703
  4. LANSOPRAZOLE [Concomitant]
     Route: 048
     Dates: end: 20030711
  5. LISINOPRIL [Suspect]
     Route: 048
     Dates: end: 20030703
  6. VIOXX [Suspect]
     Route: 048
     Dates: end: 20030703

REACTIONS (6)
  - DEHYDRATION [None]
  - ERYSIPELAS [None]
  - HYPERPHOSPHATAEMIA [None]
  - HYPONATRAEMIA [None]
  - RENAL FAILURE ACUTE [None]
  - SEPSIS [None]
